FAERS Safety Report 9379395 (Version 3)
Quarter: 2013Q3

REPORT INFORMATION
  Report Type: Spontaneous
  Country: US (occurrence: None)
  Receive Date: 20130626
  Receipt Date: 20130718
  Transmission Date: 20140515
  Serious: Yes (Death)
  Sender: FDA-Public Use
  Company Number: JPI-P-033059

PATIENT
  Age: 49 Year
  Sex: Female
  Weight: 76.2 kg

DRUGS (16)
  1. XYREM [Suspect]
     Indication: CATAPLEXY
     Route: 048
     Dates: start: 200301
  2. METHYLAMPHETAMINE HYDROCHLORIDE ( 5 MILLIGRAM, TABLETS) [Concomitant]
  3. FUROSEMIDE (TABLETS) [Concomitant]
  4. QUETIAPINE FUMARATE (TABLETS) [Concomitant]
  5. POTASSIUM CHLORIDE [Concomitant]
  6. BUPROPION HYDROCHLORIDE (UNKNOWN) [Concomitant]
  7. ALPRAZOLAM (TABLETS) [Concomitant]
  8. ROPINIROLE HYDROCHLORIDE (TABLETS) [Concomitant]
  9. CITALOPRAM (TABLETS) [Concomitant]
  10. FENTANYL PATCH (POULTICE OR PATCH) [Concomitant]
  11. VITAMIN D2 (CAPSULES) [Concomitant]
  12. METRONIDAZOLE [Concomitant]
  13. FLUCONAZOLE [Concomitant]
  14. OXYCODONE (TABLETS) [Concomitant]
  15. TIZANIDINE (TABLETS) [Concomitant]
  16. ACETAMINOPHEN: HYDROCODONE BITARTRATE [Concomitant]

REACTIONS (4)
  - Cardiac arrest [None]
  - Dry mouth [None]
  - Application site rash [None]
  - Application site exfoliation [None]
